FAERS Safety Report 10559799 (Version 4)
Quarter: 2015Q1

REPORT INFORMATION
  Report Type: Spontaneous
  Country: FR (occurrence: None)
  Receive Date: 20141030
  Receipt Date: 20150116
  Transmission Date: 20150720
  Serious: Yes (Hospitalization)
  Sender: FDA-Public Use
  Company Number: FR2014GSK008705

PATIENT
  Age: 3 Day
  Sex: Female
  Weight: 2.1 kg

DRUGS (10)
  1. ECONAZOLE [Concomitant]
     Active Substance: ECONAZOLE
     Indication: HIV INFECTION
     Route: 064
  2. CORTICOSTEROID [Concomitant]
     Active Substance: CORTICOSTEROID NOS
     Indication: PRODUCT USED FOR UNKNOWN INDICATION
     Route: 064
     Dates: start: 20140924, end: 20140925
  3. RETROVIR [Suspect]
     Active Substance: ZIDOVUDINE
     Indication: PROPHYLAXIS
     Route: 048
     Dates: start: 20141001, end: 20141002
  4. INVIRASE [Concomitant]
     Active Substance: SAQUINAVIR MESYLATE
     Indication: HIV INFECTION
     Route: 064
  5. VIREAD [Concomitant]
     Active Substance: TENOFOVIR DISOPROXIL FUMARATE
     Indication: HIV INFECTION
     Route: 064
  6. EPIVIR(LAMIVUDINE) [Concomitant]
  7. VIRAMUNE(NEVIRAPINE) [Concomitant]
  8. SECNOL [Concomitant]
     Active Substance: SECNIDAZOLE
     Indication: HIV INFECTION
     Route: 064
  9. ADALAT [Concomitant]
     Active Substance: NIFEDIPINE
     Indication: TOCOLYSIS
     Route: 064
     Dates: start: 20140924
  10. NORVIR [Concomitant]
     Active Substance: RITONAVIR
     Indication: HIV INFECTION
     Route: 064

REACTIONS (10)
  - Congenital limb hyperextension [None]
  - Maternal drugs affecting foetus [None]
  - Premature baby [None]
  - Accidental overdose [None]
  - Foetal exposure during pregnancy [None]
  - Overdose [None]
  - Incorrect dose administered [None]
  - Medication error [None]
  - Wrong technique in drug usage process [None]
  - Caesarean section [None]

NARRATIVE: CASE EVENT DATE: 20140928
